FAERS Safety Report 7440958-X (Version None)
Quarter: 2011Q2

REPORT INFORMATION
  Report Type: 
  Country: None (occurrence: None)
  Receive Date: 20110427
  Receipt Date: 20110419
  Transmission Date: 20111010
  Serious: Yes (Death)
  Sender: FDA-Public Use
  Company Number: KR-PFIZER INC-2011081929

PATIENT
  Age: 78 Year
  Sex: Female
  Weight: 55 kg

DRUGS (1)
  1. SUTENE [Suspect]
     Indication: RENAL CELL CARCINOMA
     Dosage: 25 MG, 1X/DAY
     Route: 048
     Dates: start: 20100324, end: 20100401

REACTIONS (1)
  - DEATH [None]
